FAERS Safety Report 4515928-1 (Version None)
Quarter: 2004Q4

REPORT INFORMATION
  Report Type: 
  Country: None (occurrence: None)
  Receive Date: 20041129
  Receipt Date: 20041129
  Transmission Date: 20050328
  Serious: No
  Sender: FDA-Public Use
  Company Number: None

PATIENT
  Age: 80 Year
  Sex: Male
  Weight: 80 kg

DRUGS (2)
  1. NIMBEX [Suspect]
     Indication: ACUTE RESPIRATORY DISTRESS SYNDROME
     Dosage: 150 MG ONCE INTRAVENOU
     Route: 042
     Dates: start: 20041122, end: 20041122
  2. NIMBEX [Suspect]
     Indication: RESPIRATORY FAILURE
     Dosage: 150 MG ONCE INTRAVENOU
     Route: 042
     Dates: start: 20041122, end: 20041122

REACTIONS (1)
  - MEDICATION ERROR [None]
